FAERS Safety Report 4506140-0 (Version None)
Quarter: 2004Q4

REPORT INFORMATION
  Report Type: 
  Country: None (occurrence: None)
  Receive Date: 20041025
  Receipt Date: 20030902
  Transmission Date: 20050328
  Serious: Yes (Other)
  Sender: FDA-Public Use
  Company Number: US-JNJFOC-20030900934

PATIENT
  Age: 26 Year
  Sex: Female
  Weight: 54.6 kg

DRUGS (5)
  1. REMICADE [Suspect]
     Indication: FEMALE GENITAL-DIGESTIVE TRACT FISTULA
     Dosage: INTRAVENOUS
     Route: 042
     Dates: start: 20000301
  2. REMICADE [Suspect]
     Indication: FEMALE GENITAL-DIGESTIVE TRACT FISTULA
     Dosage: INTRAVENOUS
     Route: 042
     Dates: start: 20030201
  3. REMICADE [Suspect]
     Indication: FEMALE GENITAL-DIGESTIVE TRACT FISTULA
     Dosage: INTRAVENOUS
     Route: 042
     Dates: start: 20030414
  4. AZATHIOPRINE [Concomitant]
  5. PENTASA [Concomitant]

REACTIONS (4)
  - ABDOMINAL ABSCESS [None]
  - ANAPHYLACTIC REACTION [None]
  - PREGNANCY [None]
  - VAGINAL DISCHARGE [None]
